FAERS Safety Report 6347048-8 (Version None)
Quarter: 2009Q3

REPORT INFORMATION
  Report Type: 
  Country: None (occurrence: None)
  Receive Date: 20090909
  Receipt Date: 20090909
  Transmission Date: 20100115
  Serious: No
  Sender: FDA-Public Use
  Company Number: None

PATIENT
  Sex: Male
  Weight: 102.3 kg

DRUGS (2)
  1. OXYCONTIN [Suspect]
     Indication: BACK PAIN
     Dosage: 40 MG 12 PER DAY
     Dates: start: 19980101, end: 20040101
  2. OXYCONTIN [Suspect]
     Indication: ROAD TRAFFIC ACCIDENT
     Dosage: 40 MG 12 PER DAY
     Dates: start: 19980101, end: 20040101

REACTIONS (4)
  - DRUG DEPENDENCE [None]
  - ECONOMIC PROBLEM [None]
  - FAMILY STRESS [None]
  - MOOD SWINGS [None]
